FAERS Safety Report 9010139 (Version 1)
Quarter: 2013Q1

REPORT INFORMATION
  Report Type: Spontaneous
  Country: US (occurrence: US)
  Receive Date: 20130110
  Receipt Date: 20130110
  Transmission Date: 20140127
  Serious: Yes (Other)
  Sender: FDA-Public Use
  Company Number: US-BRISTOL-MYERS SQUIBB COMPANY-17258187

PATIENT
  Age: 58 Year
  Sex: Female
  Weight: 125 kg

DRUGS (8)
  1. ABATACEPT SUBQ INJECTION 125MG/ML [Suspect]
     Indication: RHEUMATOID ARTHRITIS
     Dosage: ORENCIA 125MG/ML PFS PACK
     Route: 058
  2. VOLTAREN [Concomitant]
     Dosage: ENTERIC COATED TABS
  3. TOPROL XL [Concomitant]
     Dosage: TABS
  4. MULTIVITAMIN [Concomitant]
     Dosage: TABS
  5. FISH OIL [Concomitant]
     Dosage: CAPS
  6. GARLIC [Concomitant]
     Dosage: CAPS
  7. METHYLSULFONYLMETHANE [Concomitant]
     Dosage: CAPS
  8. TEMAZEPAM [Concomitant]
     Dosage: CAPS

REACTIONS (2)
  - Wrist surgery [Unknown]
  - Postoperative wound infection [Recovered/Resolved]
